FAERS Safety Report 24325382 (Version 3)
Quarter: 2025Q2

REPORT INFORMATION
  Report Type: Report from Study
  Country: GB (occurrence: GB)
  Receive Date: 20240916
  Receipt Date: 20250516
  Transmission Date: 20250717
  Serious: Yes (Other)
  Sender: SAMSUNG BIOEPIS
  Company Number: GB-SAMSUNG BIOEPIS-SB-2024-26940

PATIENT
  Age: 65 Year
  Sex: Male

DRUGS (2)
  1. ETANERCEPT [Suspect]
     Active Substance: ETANERCEPT
     Indication: Rheumatoid arthritis
     Route: 058
     Dates: end: 20240826
  2. ETANERCEPT [Suspect]
     Active Substance: ETANERCEPT
     Route: 058
     Dates: start: 20250505

REACTIONS (6)
  - Rheumatoid arthritis [Unknown]
  - Lower respiratory tract infection viral [Unknown]
  - Malaise [Unknown]
  - COVID-19 [Unknown]
  - Influenza [Unknown]
  - Weight decreased [Unknown]
